FAERS Safety Report 9889107 (Version 1)
Quarter: 2014Q1

REPORT INFORMATION
  Report Type: Spontaneous
  Country: US (occurrence: US)
  Receive Date: 20140211
  Receipt Date: 20140211
  Transmission Date: 20141002
  Serious: No
  Sender: FDA-Public Use
  Company Number: US-009507513-1402USA004448

PATIENT
  Age: 59 Year
  Sex: Female

DRUGS (1)
  1. NASONEX [Suspect]
     Dosage: UNK
     Route: 045

REACTIONS (1)
  - Pruritus [Unknown]
